FAERS Safety Report 9399863 (Version 1)
Quarter: 2013Q3

REPORT INFORMATION
  Report Type: Spontaneous
  Country: BR (occurrence: BR)
  Receive Date: 20130715
  Receipt Date: 20130715
  Transmission Date: 20140515
  Serious: Yes (Life-Threatening, Other)
  Sender: FDA-Public Use
  Company Number: PHHY2013BR074496

PATIENT
  Sex: Female

DRUGS (2)
  1. TEGRETOL [Suspect]
  2. CARBAMAZEPINE [Suspect]

REACTIONS (1)
  - Convulsion [Unknown]
